FAERS Safety Report 9196387 (Version 1)
Quarter: 2013Q1

REPORT INFORMATION
  Report Type: Spontaneous
  Country: IT (occurrence: IT)
  Receive Date: 20130328
  Receipt Date: 20130328
  Transmission Date: 20140127
  Serious: Yes (Hospitalization)
  Sender: FDA-Public Use
  Company Number: IT-MYLANLABS-2013S1006036

PATIENT
  Age: 86 Year
  Sex: Female

DRUGS (6)
  1. FUROSEMIDE [Suspect]
     Indication: DIURETIC THERAPY
     Dosage: 25 MG/DAY
     Route: 065
  2. FUROSEMIDE [Suspect]
     Indication: DIURETIC THERAPY
     Dosage: 50 MG/DAY
     Route: 065
  3. FUROSEMIDE [Suspect]
     Indication: DIURETIC THERAPY
     Route: 042
  4. METHYLPREDNISOLONE [Suspect]
     Dosage: 20 MG/DAY
     Route: 030
  5. ACETYLCYSTEINE [Concomitant]
     Route: 055
  6. CIPROFLOXACIN [Concomitant]
     Indication: ANTIBIOTIC THERAPY
     Dosage: 500 MG/DAY
     Route: 048

REACTIONS (2)
  - Cardiac failure [Recovering/Resolving]
  - Hypocalcaemia [Recovered/Resolved]
